FAERS Safety Report 9610948 (Version 3)
Quarter: 2013Q4

REPORT INFORMATION
  Report Type: Spontaneous
  Country: IT (occurrence: IT)
  Receive Date: 20131009
  Receipt Date: 20131017
  Transmission Date: 20140711
  Serious: Yes (Hospitalization)
  Sender: FDA-Public Use
  Company Number: PHHY2013IT113323

PATIENT
  Age: 78 Year
  Sex: Female

DRUGS (3)
  1. TAREG [Suspect]
     Indication: HYPERTENSION
     Dosage: 80 MG, DAILY
     Route: 048
     Dates: start: 20120807, end: 20130806
  2. DIDROGYL [Concomitant]
     Dosage: 1.5MG IN 10 ML
  3. CARDIOASPIRIN [Concomitant]

REACTIONS (1)
  - Hyponatraemia [Recovered/Resolved]
